FAERS Safety Report 7130370-5 (Version None)
Quarter: 2010Q4

REPORT INFORMATION
  Report Type: 
  Country: None (occurrence: None)
  Receive Date: 20101116
  Receipt Date: 20101110
  Transmission Date: 20110411
  Serious: Yes (Hospitalization, Disabling)
  Sender: FDA-Public Use
  Company Number: 2010144505

PATIENT
  Age: 50 Year
  Sex: Female
  Weight: 55 kg

DRUGS (6)
  1. FRAGMIN [Suspect]
     Indication: THROMBOSIS PROPHYLAXIS
     Dosage: 2500 IU, 1X/DAY, SUBCUTANEOUS
     Route: 058
     Dates: start: 20100218, end: 20100223
  2. MANNITOL [Concomitant]
  3. SODIUM CHLORIDE 0.9% [Concomitant]
  4. DEXAMETHASONE [Concomitant]
  5. LASIX [Concomitant]
  6. PEPTORAN (RANITIDINE) [Concomitant]

REACTIONS (2)
  - ARM AMPUTATION [None]
  - EMBOLISM ARTERIAL [None]
